FAERS Safety Report 9140982 (Version 3)
Quarter: 2013Q1

REPORT INFORMATION
  Report Type: Spontaneous
  Country: JP (occurrence: JP)
  Receive Date: 20130305
  Receipt Date: 20130326
  Transmission Date: 20140127
  Serious: Yes (Hospitalization)
  Sender: FDA-Public Use
  Company Number: JP-009507513-1303JPN000392

PATIENT
  Age: 59 Year
  Sex: Female
  Weight: 40 kg

DRUGS (7)
  1. PEGINTRON [Suspect]
     Indication: CHRONIC HEPATITIS C
     Dosage: 1.5 MICROGRAM PER KILOGRAM, UNK
     Route: 058
     Dates: start: 20130130, end: 20130218
  2. REBETOL [Suspect]
     Indication: CHRONIC HEPATITIS C
     Dosage: 400 MG, QD
     Route: 048
     Dates: start: 20130130, end: 20130218
  3. TELAVIC [Suspect]
     Indication: CHRONIC HEPATITIS C
     Dosage: 1500 MG, QD
     Route: 048
     Dates: start: 20130130, end: 20130218
  4. CONIEL [Concomitant]
     Dosage: 4 MG, QD,FORMULATION:POR
     Route: 048
  5. JANUVIA TABLETS 50MG [Concomitant]
     Dosage: 50 MG, QD, FORMULATION:POR
     Route: 048
  6. NOVORAPID 70 MIX [Concomitant]
     Dosage: 62 DF, QD
     Route: 058
  7. LOXONIN [Concomitant]
     Indication: PROPHYLAXIS
     Dosage: 60MG/DAY AS NEEDED,DAILY DOSE UNKNOWN, FORMULATION:POR
     Route: 048
     Dates: start: 20130130, end: 20130218

REACTIONS (4)
  - Ascites [Recovered/Resolved]
  - Face oedema [Recovering/Resolving]
  - Altered state of consciousness [Recovered/Resolved]
  - Disturbance in attention [Recovered/Resolved]
